FAERS Safety Report 5468473-3 (Version None)
Quarter: 2007Q3

REPORT INFORMATION
  Report Type: 
  Country: None (occurrence: None)
  Receive Date: 20070926
  Receipt Date: 20070613
  Transmission Date: 20080115
  Serious: No
  Sender: FDA-Public Use
  Company Number: US-BRISTOL-MYERS SQUIBB COMPANY-13813928

PATIENT
  Age: 63 Year
  Sex: Female
  Weight: 68 kg

DRUGS (3)
  1. ORENCIA [Suspect]
  2. DYAZIDE [Concomitant]
  3. ASPIRIN [Concomitant]

REACTIONS (4)
  - IMPAIRED HEALING [None]
  - PHOTOPSIA [None]
  - TREMOR [None]
  - VISUAL ACUITY REDUCED [None]
